FAERS Safety Report 15654738 (Version 1)
Quarter: 2018Q4

REPORT INFORMATION
  Report Type: Report from Study
  Country: CA (occurrence: CA)
  Receive Date: 20181126
  Receipt Date: 20181126
  Transmission Date: 20190205
  Serious: Yes (Death, Hospitalization, Other)
  Sender: FDA-Public Use
  Company Number: CA-TEVA-2018-CA-979373

PATIENT
  Age: 83 Year
  Sex: Male

DRUGS (4)
  1. SANDOSTATIN [Suspect]
     Active Substance: OCTREOTIDE ACETATE
     Indication: ANGIODYSPLASIA
     Dosage: 100 MICROGRAM DAILY;
     Route: 058
  2. SANDOSTATIN [Suspect]
     Active Substance: OCTREOTIDE ACETATE
     Indication: ANAEMIA
     Route: 030
  3. BISOPROLOL [Suspect]
     Active Substance: BISOPROLOL
     Indication: PRODUCT USED FOR UNKNOWN INDICATION
     Dosage: 5 MILLIGRAM DAILY;
     Route: 048
  4. COUMADIN [Concomitant]
     Active Substance: WARFARIN SODIUM
     Indication: PRODUCT USED FOR UNKNOWN INDICATION
     Route: 065

REACTIONS (24)
  - Haematuria [Fatal]
  - Heart rate decreased [Fatal]
  - Oedema peripheral [Fatal]
  - Weight decreased [Fatal]
  - Cardiac arrest [Fatal]
  - Clostridium difficile infection [Fatal]
  - Product use in unapproved indication [Fatal]
  - Respiratory disorder [Fatal]
  - Gait disturbance [Fatal]
  - International normalised ratio abnormal [Fatal]
  - Phlebitis [Fatal]
  - Pulmonary embolism [Fatal]
  - Renal failure [Fatal]
  - Dyspnoea exertional [Fatal]
  - Fatigue [Fatal]
  - Joint injury [Fatal]
  - Pain in extremity [Fatal]
  - General physical health deterioration [Fatal]
  - Nasal injury [Fatal]
  - Contusion [Fatal]
  - Death [Fatal]
  - Fall [Fatal]
  - Gout [Fatal]
  - Blood urine present [Fatal]
